FAERS Safety Report 18410981 (Version 2)
Quarter: 2022Q2

REPORT INFORMATION
  Report Type: Spontaneous
  Country: US (occurrence: US)
  Receive Date: 20201021
  Receipt Date: 20220528
  Transmission Date: 20220721
  Serious: Yes (Other)
  Sender: FDA-Public Use
  Company Number: US-SAARTEMIS-SAC202010150208

PATIENT
  Age: 60 Year
  Sex: Male

DRUGS (1)
  1. ZANTAC [Suspect]
     Active Substance: RANITIDINE HYDROCHLORIDE
     Indication: Dyspepsia
     Dosage: 150 MG, QW
     Dates: start: 199501, end: 200701

REACTIONS (1)
  - Colorectal cancer stage III [Recovering/Resolving]

NARRATIVE: CASE EVENT DATE: 20121024
